FAERS Safety Report 7559164-3 (Version None)
Quarter: 2011Q2

REPORT INFORMATION
  Report Type: 
  Country: None (occurrence: None)
  Receive Date: 20110621
  Receipt Date: 20110614
  Transmission Date: 20111010
  Serious: Yes (Hospitalization)
  Sender: FDA-Public Use
  Company Number: JP-PFIZER INC-2011109414

PATIENT
  Age: 68 Year
  Sex: Male
  Weight: 60 kg

DRUGS (12)
  1. TEMSIROLIMUS [Suspect]
     Dosage: 25 MG, WEEKLY
     Dates: start: 20110228, end: 20110228
  2. TEMSIROLIMUS [Suspect]
     Indication: RENAL CELL CARCINOMA
     Dosage: 25 MG, WEEKLY
     Dates: start: 20101206, end: 20101227
  3. DIPHENHYDRAMINE HYDROCHLORIDE [Concomitant]
     Indication: PROPHYLAXIS
     Dosage: 50 MG, WEEKLY
     Route: 048
  4. DIOVAN [Concomitant]
     Dosage: 80 MG, 1X/DAY
     Route: 048
  5. LEVOTHYROXINE SODIUM [Concomitant]
     Dosage: 100 MG, 1X/DAY
     Route: 048
  6. TEMSIROLIMUS [Suspect]
     Dosage: 25 MG, WEEKLY
     Dates: start: 20110104, end: 20110214
  7. GLYCYRON [Concomitant]
     Dosage: 35 MG, 3X/DAY
     Route: 048
  8. LANSOPRAZOLE [Concomitant]
     Dosage: 15 MG, 1X/DAY
     Route: 048
  9. TORASEMIDE [Concomitant]
     Dosage: 4 MG, 1X/DAY
     Route: 048
  10. NEUFAN [Concomitant]
     Dosage: 100 MG, 1X/DAY
     Route: 048
  11. DEPAS [Concomitant]
     Dosage: 0.5 MG, 1X/DAY
     Route: 048
  12. LAC B [Concomitant]
     Dosage: 1 G, 3X/DAY
     Route: 048

REACTIONS (1)
  - PLEURAL EFFUSION [None]
